FAERS Safety Report 23539225 (Version 1)
Quarter: 2024Q1

REPORT INFORMATION
  Report Type: Spontaneous
  Country: US (occurrence: US)
  Receive Date: 20240219
  Receipt Date: 20240219
  Transmission Date: 20240410
  Serious: No
  Sender: FDA-Public Use
  Company Number: US-CTI BIOPHARMA-2023US04383

PATIENT

DRUGS (14)
  1. VONJO [Suspect]
     Active Substance: PACRITINIB
     Indication: Myeloproliferative neoplasm
     Dosage: 200 MG, BID
     Dates: start: 20231213
  2. TYLENOL [Concomitant]
     Active Substance: ACETAMINOPHEN
  3. HYOSCYAMINE SULFATE [Concomitant]
     Active Substance: HYOSCYAMINE SULFATE
  4. IBUPROFEN [Concomitant]
     Active Substance: IBUPROFEN
  5. NOVOLIN N [Concomitant]
     Active Substance: INSULIN HUMAN
  6. LANTUS [Concomitant]
     Active Substance: INSULIN GLARGINE
  7. LEVOTHYROXINE [Concomitant]
     Active Substance: LEVOTHYROXINE\LEVOTHYROXINE SODIUM
  8. LISINOPRIL [Concomitant]
     Active Substance: LISINOPRIL
  9. PANTOPRAZOLE [Concomitant]
     Active Substance: PANTOPRAZOLE
  10. MOUNJARO [Concomitant]
     Active Substance: TIRZEPATIDE
  11. NARCAN [Concomitant]
     Active Substance: NALOXONE HYDROCHLORIDE
  12. HIGH DENSITY POLYETHYLENE [Concomitant]
     Active Substance: HIGH DENSITY POLYETHYLENE
  13. SENNA PLUS [Concomitant]
     Active Substance: DOCUSATE SODIUM\SENNOSIDES\SENNOSIDES A AND B
  14. ZOFRAN [Concomitant]
     Active Substance: ONDANSETRON HYDROCHLORIDE

REACTIONS (10)
  - Irritable bowel syndrome [Unknown]
  - Gastroenteritis viral [Unknown]
  - Fatigue [Unknown]
  - Insomnia [Recovering/Resolving]
  - Rash [Unknown]
  - Off label use [Unknown]
  - Hypersensitivity [Unknown]
  - Rash pruritic [Unknown]
  - Pyrexia [Unknown]
  - Diarrhoea [Unknown]
